FAERS Safety Report 17338633 (Version 1)
Quarter: 2020Q1

REPORT INFORMATION
  Report Type: Spontaneous
  Country: US (occurrence: US)
  Receive Date: 20200113
  Receipt Date: 20200113
  Transmission Date: 20200409
  Serious: Yes (Hospitalization)
  Sender: FDA-Public Use
  Company Number: None

PATIENT
  Age: 1 Year
  Sex: Male

DRUGS (4)
  1. SILDENAFIL 10MG/ML [Suspect]
     Active Substance: SILDENAFIL
     Indication: PULMONARY HYPERTENSION
     Dosage: ?          OTHER FREQUENCY:Q8H;?
     Route: 048
     Dates: start: 20190717
  2. EPANED [Concomitant]
     Active Substance: ENALAPRIL MALEATE
  3. FUROSEMIDE. [Concomitant]
     Active Substance: FUROSEMIDE
  4. CYPROHEPTADINE. [Concomitant]
     Active Substance: CYPROHEPTADINE

REACTIONS (2)
  - Viral infection [None]
  - Therapy cessation [None]

NARRATIVE: CASE EVENT DATE: 20200106
